FAERS Safety Report 22280856 (Version 3)
Quarter: 2024Q2

REPORT INFORMATION
  Report Type: Report from Study
  Country: US (occurrence: US)
  Receive Date: 20230503
  Receipt Date: 20240618
  Transmission Date: 20240715
  Serious: Yes (Other)
  Sender: FDA-Public Use
  Company Number: US-ABBVIE-4750486

PATIENT
  Sex: Male

DRUGS (1)
  1. HUMIRA [Suspect]
     Active Substance: ADALIMUMAB
     Indication: Colitis ulcerative
     Dosage: CITRATE FREE
     Route: 058
     Dates: start: 20210505

REACTIONS (7)
  - Cardiac disorder [Unknown]
  - Pain in extremity [Unknown]
  - Vein collapse [Unknown]
  - Peripheral swelling [Unknown]
  - Peripheral arterial occlusive disease [Unknown]
  - Epistaxis [Unknown]
  - Varicose vein [Unknown]

NARRATIVE: CASE EVENT DATE: 20220101
